FAERS Safety Report 10025628 (Version 1)
Quarter: 2014Q1

REPORT INFORMATION
  Report Type: Spontaneous
  Country: US (occurrence: None)
  Receive Date: 20140228
  Receipt Date: 20140228
  Transmission Date: 20141002
  Serious: Yes (Other)
  Sender: FDA-Public Use
  Company Number: US-JNJFOC-20130612557

PATIENT
  Sex: Female

DRUGS (2)
  1. IBUPROFEN [Suspect]
     Indication: MIGRAINE
     Dosage: UNKNOWN
  2. IBUPROFEN [Suspect]
     Indication: PAIN
     Dosage: UNKNOWN

REACTIONS (3)
  - Gastric perforation [None]
  - Drug ineffective [None]
  - Overdose [None]
